FAERS Safety Report 4912782-0 (Version None)
Quarter: 2006Q1

REPORT INFORMATION
  Report Type: 
  Country: None (occurrence: None)
  Receive Date: 20060215
  Receipt Date: 20060117
  Transmission Date: 20060701
  Serious: Yes (Hospitalization)
  Sender: FDA-Public Use
  Company Number: GB-ROCHE-435915

PATIENT
  Age: 45 Year
  Sex: Female
  Weight: 114.7 kg

DRUGS (2)
  1. XENICAL [Suspect]
     Indication: OBESITY
     Route: 048
     Dates: start: 20051119
  2. IBUPROFEN [Concomitant]

REACTIONS (1)
  - CHEST PAIN [None]
